FAERS Safety Report 7355205-7 (Version None)
Quarter: 2011Q1

REPORT INFORMATION
  Report Type: 
  Country: None (occurrence: None)
  Receive Date: 20110316
  Receipt Date: 20110310
  Transmission Date: 20110831
  Serious: No
  Sender: FDA-Public Use
  Company Number: US-PFIZER INC-2011053821

PATIENT
  Sex: Female
  Weight: 72.562 kg

DRUGS (5)
  1. EFFEXOR XR [Suspect]
     Indication: DEPRESSION
     Dosage: UNK
  2. PRISTIQ [Suspect]
     Indication: DEPRESSION
     Dosage: 50 MG, DAILY
     Route: 048
     Dates: start: 20110307
  3. NORVASC [Concomitant]
     Indication: HYPERTENSION
     Dosage: UNK
  4. SIMVASTATIN [Concomitant]
     Indication: BLOOD CHOLESTEROL INCREASED
     Dosage: 20 MG, DAILY
  5. MAXZIDE [Concomitant]
     Indication: HYPERTENSION
     Dosage: 37.5/25 MG, UNK

REACTIONS (1)
  - DIZZINESS [None]
